FAERS Safety Report 24634158 (Version 3)
Quarter: 2024Q4

REPORT INFORMATION
  Report Type: Spontaneous
  Country: US (occurrence: US)
  Receive Date: 20241119
  Receipt Date: 20241129
  Transmission Date: 20250114
  Serious: No
  Sender: AJANTA PHARMA USA INC
  Company Number: US-AJANTA-2024AJA00176

PATIENT
  Age: 48 Year
  Sex: Male
  Weight: 360 kg

DRUGS (1)
  1. SILODOSIN [Suspect]
     Active Substance: SILODOSIN
     Indication: Benign prostatic hyperplasia
     Dates: start: 20241022, end: 20241023

REACTIONS (5)
  - Dry mouth [Not Recovered/Not Resolved]
  - Oropharyngeal pain [Unknown]
  - Throat irritation [Not Recovered/Not Resolved]
  - Dry throat [Not Recovered/Not Resolved]
  - Product contamination physical [Unknown]

NARRATIVE: CASE EVENT DATE: 20240101
